FAERS Safety Report 4339055-1 (Version None)
Quarter: 2004Q1

REPORT INFORMATION
  Report Type: 
  Country: None (occurrence: None)
  Receive Date: 20040329
  Receipt Date: 20040224
  Transmission Date: 20041129
  Serious: No
  Sender: FDA-Public Use
  Company Number: USA040258370

PATIENT
  Age: 32 Year
  Sex: Male
  Weight: 109 kg

DRUGS (2)
  1. ZYPREXA [Suspect]
     Indication: BIPOLAR DISORDER
     Dosage: 10 MG/DAY
     Dates: start: 20040101, end: 20040201
  2. STRATTERA [Suspect]
     Indication: ATTENTION DEFICIT/HYPERACTIVITY DISORDER
     Dates: start: 20040202

REACTIONS (3)
  - AGITATION [None]
  - ERECTILE DYSFUNCTION [None]
  - PARANOIA [None]
